FAERS Safety Report 5787198-8 (Version None)
Quarter: 2008Q2

REPORT INFORMATION
  Report Type: 
  Country: None (occurrence: None)
  Receive Date: 20080625
  Receipt Date: 20070904
  Transmission Date: 20081010
  Serious: No
  Sender: FDA-Public Use
  Company Number: US-ASTRAZENECA-2007UW20815

PATIENT
  Age: 78 Year
  Sex: Female

DRUGS (4)
  1. PULMICORT FLEXHALER [Suspect]
     Indication: COUGH
     Dosage: 180 UG 4 PUFFS
     Route: 055
  2. HIGH BLOOD PRESSURE PILL [Concomitant]
  3. BENICAR [Concomitant]
  4. GLUCOSAMINE [Concomitant]

REACTIONS (2)
  - ALOPECIA [None]
  - CHEST PAIN [None]
